FAERS Safety Report 6677556-1 (Version None)
Quarter: 2010Q2

REPORT INFORMATION
  Report Type: 
  Country: None (occurrence: None)
  Receive Date: 20100412
  Receipt Date: 20100215
  Transmission Date: 20101027
  Serious: No
  Sender: FDA-Public Use
  Company Number: CA-ALEXION-A201000178

PATIENT

DRUGS (11)
  1. SOLIRIS [Suspect]
     Indication: PAROXYSMAL NOCTURNAL HAEMOGLOBINURIA
     Dosage: 600 MG, QW
     Route: 042
     Dates: start: 20091106, end: 20091129
  2. SOLIRIS [Suspect]
     Dosage: 900 MG, Q2W
     Route: 042
     Dates: start: 20091204
  3. FOLIC ACID [Concomitant]
     Dosage: 1 MG, QD
  4. PREDNISOLONE [Concomitant]
     Dosage: 5 MG, QOD
  5. ZANTAC                             /00550802/ [Concomitant]
     Dosage: UNK
  6. ADALAT [Concomitant]
     Dosage: 30 MG, QD
  7. LASIX [Concomitant]
     Dosage: 40 MG, QD
  8. FOSAMAX [Concomitant]
     Dosage: QW
  9. COUMADIN [Concomitant]
     Dosage: 5 MG, QD
  10. IRON [Concomitant]
     Dosage: UNK
  11. CALCIUM [Concomitant]
     Dosage: UNK

REACTIONS (1)
  - UPPER RESPIRATORY TRACT INFECTION [None]
